APPROVED DRUG PRODUCT: METFORMIN HYDROCHLORIDE
Active Ingredient: METFORMIN HYDROCHLORIDE
Strength: 850MG
Dosage Form/Route: TABLET;ORAL
Application: A091184 | Product #002 | TE Code: AB
Applicant: ALKEM LABORATORIES LTD
Approved: Nov 1, 2010 | RLD: No | RS: No | Type: RX